FAERS Safety Report 7519206-8 (Version None)
Quarter: 2011Q2

REPORT INFORMATION
  Report Type: 
  Country: None (occurrence: None)
  Receive Date: 20110602
  Receipt Date: 20110322
  Transmission Date: 20111010
  Serious: No
  Sender: FDA-Public Use
  Company Number: US-BRISTOL-MYERS SQUIBB COMPANY-15624596

PATIENT
  Sex: Female

DRUGS (3)
  1. METFORMIN HCL [Concomitant]
  2. KOMBIGLYZE XR [Suspect]
  3. ONGLYZA [Concomitant]

REACTIONS (1)
  - URTICARIA [None]
